FAERS Safety Report 9342533 (Version 1)
Quarter: 2013Q2

REPORT INFORMATION
  Report Type: Spontaneous
  Country: FR (occurrence: FR)
  Receive Date: 20130611
  Receipt Date: 20130611
  Transmission Date: 20140414
  Serious: Yes (Other)
  Sender: FDA-Public Use
  Company Number: FR-ELI_LILLY_AND_COMPANY-FR201306000860

PATIENT
  Age: 56 Year
  Sex: Female

DRUGS (4)
  1. CYMBALTA [Suspect]
     Dosage: UNK, UNKNOWN
     Route: 048
  2. TERCIAN [Concomitant]
     Dosage: UNK, UNKNOWN
  3. DEPAKOTE [Concomitant]
     Dosage: UNK, UNKNOWN
  4. LYSANXIA [Concomitant]
     Dosage: UNK, UNKNOWN

REACTIONS (2)
  - Type 2 diabetes mellitus [Unknown]
  - Weight increased [Unknown]
